FAERS Safety Report 8337651-8 (Version None)
Quarter: 2012Q2

REPORT INFORMATION
  Report Type: 
  Country: None (occurrence: None)
  Receive Date: 20120504
  Receipt Date: 20120504
  Transmission Date: 20120825
  Serious: Yes (Other)
  Sender: FDA-Public Use
  Company Number: None

PATIENT
  Age: 42 Year
  Sex: Female
  Weight: 61.688 kg

DRUGS (1)
  1. TAMOXIFEN CITRATE [Suspect]
     Indication: BREAST CANCER
     Dosage: |DOSAGETEXT: 1 PILL||STRENGTH: 20MG||FREQ: ONCE A DAY||ROUTE: ORAL|
     Route: 048
     Dates: start: 20090206, end: 20120219

REACTIONS (11)
  - GASTRIC DISORDER [None]
  - CHEST DISCOMFORT [None]
  - DRUG INEFFECTIVE [None]
  - TOOTHACHE [None]
  - URTICARIA [None]
  - PARAESTHESIA ORAL [None]
  - GINGIVAL SWELLING [None]
  - THROAT TIGHTNESS [None]
  - SKIN DISCOLOURATION [None]
  - DYSPHAGIA [None]
  - SWOLLEN TONGUE [None]
